FAERS Safety Report 13754877 (Version 1)
Quarter: 2017Q3

REPORT INFORMATION
  Report Type: Spontaneous
  Country: US (occurrence: US)
  Receive Date: 20170714
  Receipt Date: 20170714
  Transmission Date: 20171127
  Serious: Yes (Hospitalization)
  Sender: FDA-Public Use
  Company Number: US-REGULIS-2023363

PATIENT
  Age: 60 Year
  Sex: Male

DRUGS (2)
  1. FENTANYL. [Concomitant]
     Active Substance: FENTANYL
     Route: 065
  2. PROVAYBLUE [Suspect]
     Active Substance: METHYLENE BLUE
     Indication: VASCULAR RESISTANCE SYSTEMIC DECREASED
     Route: 042

REACTIONS (1)
  - Serotonin syndrome [Recovered/Resolved]
